FAERS Safety Report 8763670 (Version 1)
Quarter: 2012Q4

REPORT INFORMATION
  Report Type: 
  Country: US (occurrence: US)
  Receive Date: 20120828
  Receipt Date: 20120828
  Transmission Date: 20130627
  Serious: Yes (Hospitalization)
  Sender: FDA-Public Use
  Company Number: US-VERTEX PHARMACEUTICAL INC.-2012-020060

PATIENT
  Age: 60 Year
  Sex: Female
  Weight: 59 kg

DRUGS (5)
  1. INCIVEK [Suspect]
     Indication: HEPATITIS C
     Dosage: 750 mg, tid
     Route: 048
     Dates: start: 20120520, end: 20120815
  2. PEGASYS [Concomitant]
     Indication: HEPATITIS C
     Dosage: 180 ?g, UNK
     Route: 058
     Dates: start: 20120520, end: 20120710
  3. PEGASYS [Concomitant]
     Dosage: 135 ?g, UNK
     Route: 058
     Dates: start: 20120710
  4. COPEGUS [Concomitant]
     Indication: HEPATITIS C
     Dosage: 400 mg, bid
     Route: 048
     Dates: start: 20120520, end: 20120628
  5. COPEGUS [Concomitant]
     Dosage: 400 mg, qd
     Route: 048
     Dates: start: 20120628

REACTIONS (11)
  - Dehydration [Unknown]
  - Anaemia [Unknown]
  - Diarrhoea [Unknown]
  - Anxiety disorder [Not Recovered/Not Resolved]
  - Tremor [Unknown]
  - Throat irritation [Unknown]
  - Abdominal pain [Unknown]
  - Drug dose omission [Recovered/Resolved]
  - Eye pruritus [Unknown]
  - Urticaria [Not Recovered/Not Resolved]
  - Vomiting [Unknown]
